FAERS Safety Report 7377126-6 (Version None)
Quarter: 2011Q1

REPORT INFORMATION
  Report Type: 
  Country: None (occurrence: None)
  Receive Date: 20110328
  Receipt Date: 20110317
  Transmission Date: 20110831
  Serious: No
  Sender: FDA-Public Use
  Company Number: US-BIOGENIDEC-2011BI010465

PATIENT
  Age: 53 Year
  Sex: Female

DRUGS (1)
  1. TYSABRI [Suspect]
     Indication: MULTIPLE SCLEROSIS
     Route: 042
     Dates: start: 20110127, end: 20110127

REACTIONS (4)
  - MULTIPLE SCLEROSIS RELAPSE [None]
  - DRUG HYPERSENSITIVITY [None]
  - TRIGEMINAL NEURALGIA [None]
  - FALL [None]
